FAERS Safety Report 8123769-1 (Version None)
Quarter: 2012Q1

REPORT INFORMATION
  Report Type: 
  Country: None (occurrence: None)
  Receive Date: 20120208
  Receipt Date: 20120202
  Transmission Date: 20120608
  Serious: Yes (Other)
  Sender: FDA-Public Use
  Company Number: PHHY2011JP097301

PATIENT
  Age: 67 Year
  Sex: Male

DRUGS (3)
  1. NEORAL [Suspect]
     Indication: GLOMERULONEPHRITIS MEMBRANOUS
     Dosage: 150 MG, DAILY
     Route: 048
     Dates: start: 20060801
  2. NEORAL [Suspect]
     Dosage: 75 MG, DAILY
     Route: 048
     Dates: start: 20091201, end: 20100401
  3. NEORAL [Suspect]
     Dosage: 100MG, DAILY
     Route: 048
     Dates: start: 20080701

REACTIONS (4)
  - WEIGHT DECREASED [None]
  - BASEDOW'S DISEASE [None]
  - HYPERTHYROIDISM [None]
  - PROTEINURIA [None]
